FAERS Safety Report 21154285 (Version 4)
Quarter: 2023Q4

REPORT INFORMATION
  Report Type: Spontaneous
  Country: AT (occurrence: AT)
  Receive Date: 20220801
  Receipt Date: 20231106
  Transmission Date: 20240109
  Serious: Yes (Disabling, Other)
  Sender: FDA-Public Use
  Company Number: AT-TEVA-2022-AT-2054476

PATIENT
  Age: 50 Year
  Sex: Male

DRUGS (18)
  1. LENALIDOMIDE [Suspect]
     Active Substance: LENALIDOMIDE
     Indication: Plasma cell myeloma recurrent
     Dates: start: 201511
  2. POMALIDOMIDE [Suspect]
     Active Substance: POMALIDOMIDE
     Indication: Plasma cell myeloma
  3. CARFILZOMIB [Suspect]
     Active Substance: CARFILZOMIB
     Indication: Plasma cell myeloma recurrent
     Dates: start: 202106
  4. ASPIRIN [Suspect]
     Active Substance: ASPIRIN
     Indication: Anticoagulant therapy
  5. HEPARIN SODIUM [Suspect]
     Active Substance: HEPARIN SODIUM
     Indication: Product used for unknown indication
     Dates: start: 201511
  6. ISATUXIMAB [Suspect]
     Active Substance: ISATUXIMAB
     Indication: Plasma cell myeloma recurrent
     Dates: start: 201511
  7. ISATUXIMAB [Suspect]
     Active Substance: ISATUXIMAB
     Dates: start: 202106
  8. VELCADE [Suspect]
     Active Substance: BORTEZOMIB
     Indication: Plasma cell myeloma recurrent
     Dates: start: 2011
  9. VELCADE [Suspect]
     Active Substance: BORTEZOMIB
     Indication: Allogenic stem cell transplantation
  10. VELCADE [Suspect]
     Active Substance: BORTEZOMIB
     Indication: Thoracic vertebral fracture
  11. CYCLOPHOSPHAMIDE [Suspect]
     Active Substance: CYCLOPHOSPHAMIDE
     Indication: Plasma cell myeloma recurrent
     Dates: start: 2011
  12. CYCLOPHOSPHAMIDE [Suspect]
     Active Substance: CYCLOPHOSPHAMIDE
     Indication: Thoracic vertebral fracture
  13. CYCLOPHOSPHAMIDE [Suspect]
     Active Substance: CYCLOPHOSPHAMIDE
     Indication: Allogenic stem cell transplantation
  14. NINLARO [Suspect]
     Active Substance: IXAZOMIB CITRATE
     Indication: Plasma cell myeloma
  15. DEXAMETHASONE [Suspect]
     Active Substance: DEXAMETHASONE
     Indication: Thoracic vertebral fracture
     Dates: start: 202106
  16. DEXAMETHASONE [Suspect]
     Active Substance: DEXAMETHASONE
     Indication: Plasma cell myeloma
     Dates: start: 2011
  17. DEXAMETHASONE [Suspect]
     Active Substance: DEXAMETHASONE
     Indication: Allogenic stem cell transplantation
     Dates: start: 201511
  18. MELPHALAN [Concomitant]
     Active Substance: MELPHALAN
     Indication: Plasma cell myeloma recurrent
     Dates: start: 2011

REACTIONS (13)
  - Thrombocytopenia [Unknown]
  - Deep vein thrombosis [Unknown]
  - Pulmonary embolism [Unknown]
  - Venous thrombosis limb [Unknown]
  - Pulmonary hypertension [Unknown]
  - Polyneuropathy [Not Recovered/Not Resolved]
  - Plasma cell myeloma [Unknown]
  - Anaemia [Unknown]
  - Infusion related reaction [Unknown]
  - Nervous system disorder [Unknown]
  - Gait disturbance [Unknown]
  - Pneumonia [Unknown]
  - Papilloedema [Unknown]

NARRATIVE: CASE EVENT DATE: 20160101
